FAERS Safety Report 5124469-2 (Version None)
Quarter: 2006Q4

REPORT INFORMATION
  Report Type: 
  Country: None (occurrence: None)
  Receive Date: 20061006
  Receipt Date: 20060928
  Transmission Date: 20070319
  Serious: Yes (Other)
  Sender: FDA-Public Use
  Company Number: B0440804A

PATIENT
  Age: 37 Year
  Sex: Female
  Weight: 69.355 kg

DRUGS (3)
  1. LAMICTAL [Suspect]
     Indication: POST-TRAUMATIC EPILEPSY
     Dosage: 100 MG TWICE PER DAY ORAL
     Route: 048
     Dates: start: 20041105
  2. NORETHINDRONE ACETATE [Suspect]
     Indication: OLIGOMENORRHOEA
     Dosage: 5 MG THREE TIMES PER DAY ORAL
     Route: 048
     Dates: start: 20060707, end: 20060711
  3. MEFENAMIC ACID [Concomitant]

REACTIONS (3)
  - DRUG INTERACTION [None]
  - EPILEPSY [None]
  - IMPAIRED DRIVING ABILITY [None]
